FAERS Safety Report 24351639 (Version 1)
Quarter: 2024Q3

REPORT INFORMATION
  Report Type: Spontaneous
  Country: US (occurrence: US)
  Receive Date: 20240923
  Receipt Date: 20240923
  Transmission Date: 20241017
  Serious: No
  Sender: REVANCE THERAPEUTICS
  Company Number: US-REVANCE THERAPEUTICS INC.-US-REV-2024-000433

PATIENT

DRUGS (2)
  1. DAXIBOTULINUMTOXIN A-LANM [Suspect]
     Active Substance: DAXIBOTULINUMTOXIN A-LANM
     Indication: Skin wrinkling
     Dosage: 104 U (80U PLATYSMAL BANDS (20U PER BAND, 4 BAND); REST OF DOSES IN JAWLINE)
     Route: 065
     Dates: start: 20240802
  2. DAXIBOTULINUMTOXIN A-LANM [Suspect]
     Active Substance: DAXIBOTULINUMTOXIN A-LANM
     Dosage: 130 U (80 U PLATYSMAL BAND (20 U PER BAND, 4 BAND); 50 U JAWLINE (UNDER NECK))
     Route: 065
     Dates: start: 20240805

REACTIONS (4)
  - Anxiety [Recovered/Resolved]
  - Panic attack [Recovered/Resolved]
  - Hot flush [Recovered/Resolved]
  - Off label use [Unknown]

NARRATIVE: CASE EVENT DATE: 20240802
